FAERS Safety Report 15214600 (Version 2)
Quarter: 2018Q3

REPORT INFORMATION
  Report Type: Report from Study
  Country: MY (occurrence: MY)
  Receive Date: 20180730
  Receipt Date: 20180820
  Transmission Date: 20181010
  Serious: Yes (Hospitalization)
  Sender: FDA-Public Use
  Company Number: PHHY2018MY056074

PATIENT
  Age: 44 Year
  Sex: Male
  Weight: 104 kg

DRUGS (3)
  1. COSENTYX [Suspect]
     Active Substance: SECUKINUMAB
     Indication: PSORIASIS
     Dosage: 300 MG, QW
     Route: 058
     Dates: start: 20180613
  2. XYZAL [Concomitant]
     Active Substance: LEVOCETIRIZINE DIHYDROCHLORIDE
     Indication: PRURITUS
     Dosage: 5 MG, QD
     Route: 065
     Dates: start: 20180613, end: 20180702
  3. ATARAX [Concomitant]
     Active Substance: HYDROXYZINE HYDROCHLORIDE
     Indication: PRURITUS
     Dosage: 25 MG, QD
     Route: 065
     Dates: start: 20180613, end: 20180702

REACTIONS (4)
  - Swelling [Recovered/Resolved with Sequelae]
  - Pyrexia [Recovered/Resolved with Sequelae]
  - Carbuncle [Recovered/Resolved with Sequelae]
  - Pain in extremity [Recovered/Resolved with Sequelae]

NARRATIVE: CASE EVENT DATE: 20180702
